FAERS Safety Report 11390809 (Version 1)
Quarter: 2015Q3

REPORT INFORMATION
  Report Type: Spontaneous
  Country: GB (occurrence: GB)
  Receive Date: 20150818
  Receipt Date: 20150818
  Transmission Date: 20151125
  Serious: Yes (Other)
  Sender: FDA-Public Use
  Company Number: PHFR2015GB000825

PATIENT
  Sex: Female
  Weight: 62 kg

DRUGS (1)
  1. ZOMETA [Suspect]
     Active Substance: ZOLEDRONIC ACID
     Indication: PRODUCT USED FOR UNKNOWN INDICATION
     Dosage: 4 MG, 6 MONTHLY
     Route: 042

REACTIONS (9)
  - Recurrent cancer [Unknown]
  - Movement disorder [Unknown]
  - Platelet count increased [Unknown]
  - Musculoskeletal discomfort [Unknown]
  - Balance disorder [Unknown]
  - Weight decreased [Unknown]
  - Fall [Recovering/Resolving]
  - Wrist fracture [Recovering/Resolving]
  - Dizziness [Unknown]
